FAERS Safety Report 6291315-3 (Version None)
Quarter: 2009Q3

REPORT INFORMATION
  Report Type: 
  Country: None (occurrence: None)
  Receive Date: 20090730
  Receipt Date: 20090722
  Transmission Date: 20100115
  Serious: Yes (Hospitalization)
  Sender: FDA-Public Use
  Company Number: CA-MERCK-0204CAN00170

PATIENT
  Sex: Female

DRUGS (4)
  1. SINGULAIR [Suspect]
     Route: 048
  2. DIVALPROEX SODIUM [Concomitant]
     Route: 065
  3. COZAAR [Concomitant]
     Route: 065
  4. DOXEPIN HYDROCHLORIDE [Concomitant]
     Route: 065

REACTIONS (1)
  - HALLUCINATION, VISUAL [None]
